FAERS Safety Report 8652907 (Version 2)
Quarter: 2012Q4

REPORT INFORMATION
  Report Type: 
  Country: AU (occurrence: AU)
  Receive Date: 20120706
  Receipt Date: 20120829
  Transmission Date: 20130627
  Serious: Yes (Death)
  Sender: FDA-Public Use
  Company Number: AU-B.I. PHARMACEUTICALS,INC./RIDGEFIELD-2012-AU-01188AU

PATIENT
  Age: 88 Year
  Sex: Female
  Weight: 37 kg

DRUGS (7)
  1. PRADAXA [Suspect]
     Indication: CEREBROVASCULAR ACCIDENT PROPHYLAXIS
     Dosage: 220 mg
     Dates: start: 20110904, end: 20120327
  2. PRADAXA [Suspect]
     Indication: ATRIAL FIBRILLATION
  3. AYLIDE [Concomitant]
     Dosage: 1 mg
     Dates: end: 20120327
  4. THYROXINE [Concomitant]
     Dosage: 100 mcg
     Dates: end: 20120327
  5. NORSPAN [Concomitant]
     Dosage: 10mcg/hr
     Dates: end: 20120327
  6. SIGMAXIN [Concomitant]
     Dosage: 125 mcg
     Dates: end: 20120327
  7. PANADOL [Concomitant]
     Dosage: 500 mg
     Dates: end: 20120327

REACTIONS (1)
  - Cerebrovascular accident [Fatal]
